FAERS Safety Report 20146617 (Version 2)
Quarter: 2021Q4

REPORT INFORMATION
  Report Type: Spontaneous
  Country: DE (occurrence: DE)
  Receive Date: 20211203
  Receipt Date: 20211217
  Transmission Date: 20220303
  Serious: Yes (Other)
  Sender: FDA-Public Use
  Company Number: DE-BAYER-2021A260046

PATIENT
  Age: 73 Year
  Sex: Male
  Weight: 75 kg

DRUGS (4)
  1. XOFIGO [Suspect]
     Active Substance: RADIUM RA-223 DICHLORIDE
     Indication: Prostate cancer metastatic
     Dosage: UNK
     Dates: start: 20210901, end: 20210901
  2. XOFIGO [Suspect]
     Active Substance: RADIUM RA-223 DICHLORIDE
     Indication: Metastases to bone
     Dosage: UNK
     Dates: start: 20210929, end: 20210929
  3. XOFIGO [Suspect]
     Active Substance: RADIUM RA-223 DICHLORIDE
     Indication: Prostate cancer metastatic
     Dosage: UNK
     Dates: start: 20211028, end: 20211028
  4. LEUPROLIDE ACETATE [Concomitant]
     Active Substance: LEUPROLIDE ACETATE
     Dosage: 5 MG
     Dates: start: 20210713

REACTIONS (2)
  - Lumbar vertebral fracture [None]
  - Back pain [None]
